FAERS Safety Report 6531377-9 (Version None)
Quarter: 2010Q1

REPORT INFORMATION
  Report Type: 
  Country: None (occurrence: None)
  Receive Date: 20100108
  Receipt Date: 20091201
  Transmission Date: 20100710
  Serious: No
  Sender: FDA-Public Use
  Company Number: A0811664A

PATIENT
  Age: 55 Year
  Sex: Female
  Weight: 75.5 kg

DRUGS (2)
  1. TYKERB [Suspect]
     Dosage: 1250MG PER DAY
     Route: 048
     Dates: start: 20090819
  2. XELODA [Suspect]
     Dosage: 1500MG TWICE PER DAY
     Route: 048
     Dates: start: 20090819

REACTIONS (7)
  - ARTHRALGIA [None]
  - CHAPPED LIPS [None]
  - FATIGUE [None]
  - LIP ULCERATION [None]
  - PALMAR-PLANTAR ERYTHRODYSAESTHESIA SYNDROME [None]
  - SKIN ULCER [None]
  - STOMATITIS [None]
